FAERS Safety Report 10881585 (Version 1)
Quarter: 2015Q1

REPORT INFORMATION
  Report Type: Spontaneous
  Country: BE (occurrence: None)
  Receive Date: 20150225
  Receipt Date: 20150225
  Transmission Date: 20150721
  Serious: Yes (Hospitalization)
  Sender: FDA-Public Use
  Company Number: None

PATIENT
  Age: 67 Year
  Sex: Female
  Weight: 64.9 kg

DRUGS (2)
  1. TAXOL [Suspect]
     Active Substance: PACLITAXEL
     Dates: end: 20141206
  2. CARBOPLATIN. [Suspect]
     Active Substance: CARBOPLATIN
     Dates: end: 20141206

REACTIONS (6)
  - Decreased appetite [None]
  - Nausea [None]
  - Neutrophil count decreased [None]
  - Vomiting [None]
  - Dizziness [None]
  - Electrolyte imbalance [None]

NARRATIVE: CASE EVENT DATE: 20141215
